FAERS Safety Report 4452601-2 (Version None)
Quarter: 2004Q3

REPORT INFORMATION
  Report Type: 
  Country: None (occurrence: None)
  Receive Date: 20040916
  Receipt Date: 20040902
  Transmission Date: 20050211
  Serious: Yes (Death)
  Sender: FDA-Public Use
  Company Number: 01P-087-0110233-00

PATIENT
  Age: 37 Year
  Sex: Male

DRUGS (20)
  1. KALETRA [Suspect]
     Indication: HIV INFECTION
     Dosage: 6 CAPSULE, 1 IN 1 D, PER ORAL
     Route: 048
     Dates: start: 20010206, end: 20010319
  2. KALETRA [Suspect]
     Indication: HIV INFECTION
     Dosage: 6 CAPSULE, 1 IN 1 D, PER ORAL
     Route: 048
     Dates: start: 20010418, end: 20021204
  3. NEVIRAPINE [Suspect]
     Indication: HIV INFECTION
     Dosage: 200 MG, 1 IN 1D, PER ORAL; 400 MG, 1 IN 1 D, PER ORAL
     Route: 048
     Dates: start: 20010206, end: 20010219
  4. NEVIRAPINE [Suspect]
     Indication: HIV INFECTION
     Dosage: 200 MG, 1 IN 1D, PER ORAL; 400 MG, 1 IN 1 D, PER ORAL
     Route: 048
     Dates: start: 20010220, end: 20010319
  5. ABACAVIR SULFATE [Suspect]
     Indication: HIV INFECTION
     Dosage: 600 MG, 1 IN 1 D, PER ORAL
     Route: 048
     Dates: start: 20010206, end: 20010220
  6. EFAVIRENZ [Suspect]
     Indication: HIV INFECTION
     Dosage: 600 MG, 1 IN 1 D, PER ORAL
     Route: 048
     Dates: start: 20010421, end: 20021204
  7. STAVUDINE [Suspect]
     Indication: HIV INFECTION
     Dosage: 60 MG, 1 IN 1 D, PER ORAL
     Route: 048
     Dates: start: 19991101, end: 20000820
  8. STAVUDINE [Suspect]
     Indication: HIV INFECTION
     Dosage: 60 MG, 1 IN 1 D, PER ORAL
     Route: 048
     Dates: start: 20010206, end: 20010319
  9. STAVUDINE [Suspect]
     Indication: HIV INFECTION
     Dosage: 60 MG, 1 IN 1 D, PER ORAL
     Route: 048
     Dates: start: 20010421, end: 20021203
  10. DIDANOSINE [Concomitant]
  11. LAMIVUDINE [Concomitant]
  12. NELFINAVIR [Concomitant]
  13. OCTOCOG ALFA [Concomitant]
  14. ECABET [Concomitant]
  15. BIFIDOBACTERIUM [Concomitant]
  16. PL [Concomitant]
  17. AZITHROMYCIN [Concomitant]
  18. SUCRALFATE [Concomitant]
  19. PEG-IFN [Concomitant]
  20. RIBAVIRIN [Concomitant]

REACTIONS (19)
  - ARTHRALGIA [None]
  - BLOOD GLUCOSE ABNORMAL [None]
  - BRAIN HERNIATION [None]
  - BRAIN OEDEMA [None]
  - DUODENAL ULCER [None]
  - HAEMORRHAGIC ASCITES [None]
  - HEPATIC CIRRHOSIS [None]
  - HYPOKALAEMIA [None]
  - MALAISE [None]
  - METABOLIC DISORDER [None]
  - MULTI-ORGAN DISORDER [None]
  - MYALGIA [None]
  - ORAL CANDIDIASIS [None]
  - PNEUMONIA [None]
  - PULMONARY HAEMORRHAGE [None]
  - PYREXIA [None]
  - RASH [None]
  - STAPHYLOCOCCAL SEPSIS [None]
  - WEIGHT DECREASED [None]
